FAERS Safety Report 5803134-X (Version None)
Quarter: 2008Q3

REPORT INFORMATION
  Report Type: 
  Country: None (occurrence: None)
  Receive Date: 20080708
  Receipt Date: 20080627
  Transmission Date: 20090109
  Serious: Yes (Hospitalization)
  Sender: FDA-Public Use
  Company Number: JP-MERCK-0806USA02917

PATIENT
  Age: 80 Year
  Sex: Female

DRUGS (7)
  1. PEPCID [Suspect]
     Indication: ANOREXIA
     Route: 048
     Dates: start: 20061214, end: 20061223
  2. PEPCID [Suspect]
     Indication: STOMACH DISCOMFORT
     Route: 048
     Dates: start: 20061214, end: 20061223
  3. TICLOPIDINE HCL [Suspect]
     Indication: ANGINA UNSTABLE
     Route: 048
     Dates: start: 20061111, end: 20061223
  4. ASPIRIN [Suspect]
     Indication: ANGINA UNSTABLE
     Route: 048
     Dates: start: 20061111, end: 20061223
  5. SIGMART [Suspect]
     Indication: ANGINA UNSTABLE
     Route: 048
     Dates: start: 20061114, end: 20061223
  6. DIGESTIVE ENZYMES [Concomitant]
     Indication: ANOREXIA
     Route: 065
     Dates: start: 20061214, end: 20061223
  7. DIGESTIVE ENZYMES [Concomitant]
     Indication: STOMACH DISCOMFORT
     Route: 065
     Dates: start: 20061214, end: 20061223

REACTIONS (1)
  - LIVER DISORDER [None]
